FAERS Safety Report 6604206-2 (Version None)
Quarter: 2010Q1

REPORT INFORMATION
  Report Type: 
  Country: None (occurrence: None)
  Receive Date: 20100226
  Receipt Date: 20090702
  Transmission Date: 20100710
  Serious: No
  Sender: FDA-Public Use
  Company Number: A0795257A

PATIENT
  Age: 16 Year
  Sex: Female

DRUGS (7)
  1. LAMICTAL CD [Suspect]
     Indication: BIPOLAR DISORDER
     Dosage: 50MG PER DAY
     Route: 048
     Dates: start: 20090608
  2. LITHIUM [Concomitant]
  3. GEODON [Concomitant]
  4. LANTUS [Concomitant]
  5. NOVOLOG [Concomitant]
  6. METFORMIN HYDROCHLORIDE [Concomitant]
  7. TOPAMAX [Concomitant]

REACTIONS (3)
  - DISCOMFORT [None]
  - PRURITUS [None]
  - RASH ERYTHEMATOUS [None]
